FAERS Safety Report 9524733 (Version 1)
Quarter: 2013Q3

REPORT INFORMATION
  Report Type: Spontaneous
  Country: US (occurrence: None)
  Receive Date: 20130912
  Receipt Date: 20130912
  Transmission Date: 20140515
  Serious: No
  Sender: FDA-Public Use
  Company Number: None

PATIENT
  Age: 73 Year
  Sex: Female
  Weight: 58.97 kg

DRUGS (6)
  1. ALENDRONATE SODIUM [Suspect]
     Indication: OSTEOPOROSIS
     Dosage: 70 MG 1 PILL (4 PILLS PER MONTH) WEEKLY, BY MOUTH
     Route: 048
     Dates: start: 20120831
  2. HYDROCHLOROTHIAZIDE [Concomitant]
  3. DIAZAPAM 10 MG GEL [Concomitant]
  4. CALCIUM [Concomitant]
  5. VITAMIN D [Concomitant]
  6. ASPIRIN [Concomitant]

REACTIONS (3)
  - Poisoning [None]
  - Fracture [None]
  - Jaw disorder [None]
